FAERS Safety Report 4922116-3 (Version None)
Quarter: 2006Q1

REPORT INFORMATION
  Report Type: 
  Country: None (occurrence: None)
  Receive Date: 20060222
  Receipt Date: 20060222
  Transmission Date: 20060701
  Serious: Yes (Life-Threatening, Disabling)
  Sender: FDA-Public Use
  Company Number: None

PATIENT
  Age: 47 Year
  Sex: Male
  Weight: 102.0593 kg

DRUGS (1)
  1. INTERFERON [Suspect]
     Indication: HEPATITIS C
     Dosage: 3 MILLION UNITS 3 TIMES A WEEK

REACTIONS (14)
  - ALOPECIA [None]
  - ANOREXIA [None]
  - ARTHROPATHY [None]
  - DEPRESSION [None]
  - DIFFICULTY IN WALKING [None]
  - DYSSTASIA [None]
  - EYE DISORDER [None]
  - LOSS OF LIBIDO [None]
  - MUSCULAR WEAKNESS [None]
  - RHEUMATOID FACTOR POSITIVE [None]
  - SKIN EXFOLIATION [None]
  - THYROID DISORDER [None]
  - TINEA PEDIS [None]
  - TOOTH LOSS [None]
